FAERS Safety Report 13105094 (Version 1)
Quarter: 2017Q1

REPORT INFORMATION
  Report Type: Spontaneous
  Country: US (occurrence: US)
  Receive Date: 20170110
  Receipt Date: 20170110
  Transmission Date: 20170428
  Serious: Yes (Hospitalization)
  Sender: FDA-Public Use
  Company Number: None

PATIENT
  Age: 53 Year
  Sex: Female
  Weight: 75.7 kg

DRUGS (1)
  1. REGORAFENIB 160MG BAYER [Suspect]
     Active Substance: REGORAFENIB
     Indication: COLORECTAL CANCER METASTATIC
     Route: 048
     Dates: start: 20161214, end: 20170103

REACTIONS (4)
  - Blood creatinine increased [None]
  - Encephalopathy [None]
  - Metabolic acidosis [None]
  - Urinary retention [None]

NARRATIVE: CASE EVENT DATE: 20170103
